FAERS Safety Report 4489426-8 (Version None)
Quarter: 2004Q4

REPORT INFORMATION
  Report Type: 
  Country: None (occurrence: None)
  Receive Date: 20041101
  Receipt Date: 20041021
  Transmission Date: 20050328
  Serious: Yes (Hospitalization)
  Sender: FDA-Public Use
  Company Number: US-ABBOTT-04P-163-0278112-00

PATIENT
  Age: 69 Year
  Sex: Male
  Weight: 132 kg

DRUGS (11)
  1. HUMIRA [Suspect]
     Indication: RHEUMATOID ARTHRITIS
     Route: 058
     Dates: start: 20040101, end: 20041001
  2. PROPRANOLOL HYDROCHLORIDE [Concomitant]
     Indication: BLOOD PRESSURE
     Route: 048
  3. OMEPRAZOLE [Concomitant]
     Indication: DRUG USE FOR UNKNOWN INDICATION
     Route: 048
  4. FOLIC ACID [Concomitant]
     Indication: RHEUMATOID ARTHRITIS
     Route: 048
  5. SPIRONOLACTONE [Concomitant]
     Indication: BLOOD PRESSURE
     Route: 048
  6. FUROSEMIDE [Concomitant]
     Indication: BLOOD PRESSURE
     Route: 048
  7. POTASSIUM CHLORIDE [Concomitant]
     Indication: ELECTROLYTE SUBSTITUTION THERAPY
     Route: 048
  8. ATORVASTATIN [Concomitant]
     Indication: BLOOD CHOLESTEROL
     Route: 048
  9. METOLAZONE [Concomitant]
     Indication: DRUG USE FOR UNKNOWN INDICATION
     Route: 048
  10. ROSIGLITAZONE MALEATE [Concomitant]
     Indication: DRUG USE FOR UNKNOWN INDICATION
     Route: 048
  11. IRON [Concomitant]
     Indication: DRUG USE FOR UNKNOWN INDICATION
     Route: 048

REACTIONS (3)
  - INTRASPINAL ABSCESS [None]
  - SCIATICA [None]
  - STAPHYLOCOCCAL SEPSIS [None]
